FAERS Safety Report 4738429-4 (Version None)
Quarter: 2005Q3

REPORT INFORMATION
  Report Type: 
  Country: None (occurrence: None)
  Receive Date: 20050803
  Receipt Date: 20050719
  Transmission Date: 20060218
  Serious: Yes (Death, Hospitalization)
  Sender: FDA-Public Use
  Company Number: 2005001357

PATIENT
  Age: 77 Year
  Sex: Male

DRUGS (6)
  1. ERLOTINIB [Suspect]
     Indication: NON-SMALL CELL LUNG CANCER
     Dosage: 150 MG (QD) ORAL
     Route: 048
     Dates: start: 20050319, end: 20050620
  2. NPH INSULIN [Concomitant]
  3. ATROVENT [Concomitant]
  4. VENTOLIN [Concomitant]
  5. AMIODARONE HCL [Concomitant]
  6. OXYGEN (OXYGEN) [Concomitant]

REACTIONS (2)
  - DRUG TOXICITY [None]
  - ENCEPHALOPATHY [None]
